FAERS Safety Report 20616384 (Version 3)
Quarter: 2022Q2

REPORT INFORMATION
  Report Type: Spontaneous
  Country: US (occurrence: US)
  Receive Date: 20220321
  Receipt Date: 20220429
  Transmission Date: 20220721
  Serious: Yes (Hospitalization, Other)
  Sender: FDA-Public Use
  Company Number: US-PFIZER INC-202200385608

PATIENT
  Age: 39 Year
  Sex: Male

DRUGS (1)
  1. GENOTROPIN [Suspect]
     Active Substance: SOMATROPIN
     Dosage: UNK, DAILY

REACTIONS (7)
  - Pulmonary embolism [Unknown]
  - Seizure [Unknown]
  - Prescription drug used without a prescription [Unknown]
  - Drug dose omission by device [Unknown]
  - Device breakage [Unknown]
  - Pain [Unknown]
  - Musculoskeletal deformity [Unknown]
